FAERS Safety Report 19056047 (Version 1)
Quarter: 2021Q1

REPORT INFORMATION
  Report Type: Report from Study
  Country: US (occurrence: US)
  Receive Date: 20210325
  Receipt Date: 20210325
  Transmission Date: 20210420
  Serious: Yes (Hospitalization)
  Sender: FDA-Public Use
  Company Number: US-JNJFOC-20210303956

PATIENT
  Age: 51 Year
  Sex: Female

DRUGS (3)
  1. SPRAVATO [Suspect]
     Active Substance: ESKETAMINE
     Dosage: CURRENT TREATMENT SESSION DOSE
     Dates: start: 20210302, end: 20210302
  2. SPRAVATO [Suspect]
     Active Substance: ESKETAMINE
     Indication: DEPRESSION
     Dosage: 56 MG, 2 TOTAL DOSES
     Dates: start: 20200123
  3. SPRAVATO [Suspect]
     Active Substance: ESKETAMINE
     Dosage: 84 MG, 102 TOTAL DOSES
     Dates: start: 20200130, end: 20210225

REACTIONS (2)
  - Dissociation [Recovered/Resolved]
  - Negative thoughts [Unknown]

NARRATIVE: CASE EVENT DATE: 20210302
